FAERS Safety Report 9737241 (Version 1)
Quarter: 2013Q4

REPORT INFORMATION
  Report Type: Spontaneous
  Country: IT (occurrence: IT)
  Receive Date: 20131206
  Receipt Date: 20131206
  Transmission Date: 20140711
  Serious: Yes (Hospitalization, Other)
  Sender: FDA-Public Use
  Company Number: PHHY2013IT138541

PATIENT
  Age: 89 Year
  Sex: Female

DRUGS (2)
  1. CITALOPRAM [Suspect]
     Indication: DEPRESSION
     Dosage: 40 MG/DAY
  2. LEVOSULPIRIDE [Interacting]
     Indication: DYSPEPSIA
     Dosage: 25 MG, TID

REACTIONS (10)
  - Palpitations [Recovered/Resolved]
  - Cardiac arrest [Recovered/Resolved]
  - Torsade de pointes [Recovered/Resolved]
  - Syncope [Recovered/Resolved]
  - Circulatory collapse [Recovered/Resolved]
  - Ventricular tachycardia [Recovered/Resolved]
  - Ventricular arrhythmia [Recovered/Resolved]
  - Electrocardiogram QT prolonged [Recovered/Resolved]
  - Bradycardia [Recovered/Resolved]
  - Drug interaction [Unknown]
